FAERS Safety Report 4610554-8 (Version None)
Quarter: 2005Q2

REPORT INFORMATION
  Report Type: 
  Country: None (occurrence: None)
  Receive Date: 20050301
  Receipt Date: 20041129
  Transmission Date: 20051028
  Serious: No
  Sender: FDA-Public Use
  Company Number: WAES 0412USA00028

PATIENT
  Sex: Male
  Weight: 77.1115 kg

DRUGS (1)
  1. ZETIA [Suspect]
     Dosage: 10/MG/PO
     Route: 048

REACTIONS (1)
  - OEDEMA PERIPHERAL [None]
